FAERS Safety Report 21043127 (Version 1)
Quarter: 2022Q3

REPORT INFORMATION
  Report Type: Report from Study
  Country: CA (occurrence: CA)
  Receive Date: 20220705
  Receipt Date: 20220705
  Transmission Date: 20221027
  Serious: Yes (Death, Other)
  Sender: FDA-Public Use
  Company Number: CA-BAYER-2022A091506

PATIENT
  Age: 85 Year
  Sex: Female

DRUGS (1)
  1. EYLEA [Suspect]
     Active Substance: AFLIBERCEPT
     Indication: Retinal vein occlusion
     Dosage: UNK; SOLUTION FOR INJECTION; STENGTH: 40 MG/ML
     Dates: start: 20220425

REACTIONS (1)
  - Death [Fatal]

NARRATIVE: CASE EVENT DATE: 20220620
